FAERS Safety Report 25602374 (Version 1)
Quarter: 2025Q3

REPORT INFORMATION
  Report Type: Spontaneous
  Country: EU (occurrence: EU)
  Receive Date: 20250724
  Receipt Date: 20250724
  Transmission Date: 20251021
  Serious: Yes (Other)
  Sender: OTSUKA
  Company Number: EU-MMM-Otsuka-FX5P3IMZ

PATIENT
  Age: 24 Year
  Sex: Male
  Weight: 62 kg

DRUGS (2)
  1. ABILIFY MAINTENA [Suspect]
     Active Substance: ARIPIPRAZOLE
     Indication: Attention deficit hyperactivity disorder
     Route: 030
     Dates: start: 20250425, end: 20250425
  2. ABILIFY MAINTENA [Suspect]
     Active Substance: ARIPIPRAZOLE
     Indication: Affect lability
     Route: 065
     Dates: start: 2025

REACTIONS (5)
  - Visual impairment [Recovered/Resolved]
  - Aggression [Recovered/Resolved]
  - Sedation [Recovered/Resolved]
  - Vision blurred [Recovering/Resolving]
  - Off label use [Not Recovered/Not Resolved]

NARRATIVE: CASE EVENT DATE: 20250425
